FAERS Safety Report 12494508 (Version 1)
Quarter: 2016Q2

REPORT INFORMATION
  Report Type: Spontaneous
  Country: US (occurrence: US)
  Receive Date: 20160624
  Receipt Date: 20160624
  Transmission Date: 20160815
  Serious: Yes (Other)
  Sender: FDA-Public Use
  Company Number: US-ROCHE-1780163

PATIENT
  Sex: Male

DRUGS (2)
  1. VIRTUSSIN AC [Suspect]
     Active Substance: CODEINE PHOSPHATE\GUAIFENESIN
     Indication: PRODUCT USED FOR UNKNOWN INDICATION
     Dosage: SYRUP
     Route: 048
  2. TAMIFLU [Suspect]
     Active Substance: OSELTAMIVIR PHOSPHATE
     Indication: PRODUCT USED FOR UNKNOWN INDICATION
     Dosage: 75 MG CAPSULES
     Route: 048

REACTIONS (6)
  - Mobility decreased [Unknown]
  - Contusion [Unknown]
  - Skin abrasion [Unknown]
  - Respiratory rate decreased [Unknown]
  - Fall [Unknown]
  - Joint stiffness [Unknown]
